FAERS Safety Report 21081653 (Version 3)
Quarter: 2024Q2

REPORT INFORMATION
  Report Type: Spontaneous
  Country: US (occurrence: US)
  Receive Date: 20220714
  Receipt Date: 20240405
  Transmission Date: 20240715
  Serious: Yes (Life-Threatening, Hospitalization, Other)
  Sender: FDA-Public Use
  Company Number: US-PFIZER INC-202200925639

PATIENT
  Age: 6 Decade
  Sex: Female

DRUGS (12)
  1. ENCORAFENIB [Suspect]
     Active Substance: ENCORAFENIB
     Indication: Malignant melanoma
     Dosage: ENCORAFENIB AND BINIMETINIB WERE BRIEFLY HELD
  2. ENCORAFENIB [Suspect]
     Active Substance: ENCORAFENIB
     Dosage: 300 MG, DAILY
  3. ENCORAFENIB [Suspect]
     Active Substance: ENCORAFENIB
     Dosage: 450 MG
  4. BINIMETINIB [Suspect]
     Active Substance: BINIMETINIB
     Indication: Malignant melanoma
     Dosage: ENCORAFENIB AND BINIMETINIB WERE BRIEFLY HELD
  5. BINIMETINIB [Suspect]
     Active Substance: BINIMETINIB
     Dosage: 30 MG, 2X/DAY
  6. BINIMETINIB [Suspect]
     Active Substance: BINIMETINIB
     Dosage: 45 MG, 2X/DAY
  7. NIVOLUMAB [Suspect]
     Active Substance: NIVOLUMAB
     Indication: Malignant melanoma
     Dosage: 2 DOSES OF NIVOLUMAB
  8. NIVOLUMAB [Suspect]
     Active Substance: NIVOLUMAB
     Indication: Neoplasm progression
  9. IPILIMUMAB [Suspect]
     Active Substance: IPILIMUMAB
     Indication: Malignant melanoma
  10. DACARBAZINE [Concomitant]
     Active Substance: DACARBAZINE
     Indication: Malignant melanoma
     Dosage: UNK
  11. VINBLASTINE [Concomitant]
     Active Substance: VINBLASTINE
     Indication: Malignant melanoma
     Dosage: UNK
  12. CISPLATIN [Concomitant]
     Active Substance: CISPLATIN
     Indication: Malignant melanoma
     Dosage: UNK

REACTIONS (1)
  - Colitis [Unknown]
